FAERS Safety Report 8309589-3 (Version None)
Quarter: 2012Q1

REPORT INFORMATION
  Report Type: 
  Country: None (occurrence: None)
  Receive Date: 20120315
  Receipt Date: 20110411
  Transmission Date: 20120608
  Serious: No
  Sender: FDA-Public Use
  Company Number: PHHY2011US26563

PATIENT
  Age: 52 Year
  Sex: Female
  Weight: 109.3 kg

DRUGS (9)
  1. TOPAMAX [Concomitant]
  2. ACIPHEX [Concomitant]
  3. DIOVAN HCT [Concomitant]
  4. DEXAMETHASONE [Concomitant]
  5. NUVIGIL [Concomitant]
  6. PROVIGIL [Concomitant]
  7. TYLENOL W/ CODEINE NO. 3 [Concomitant]
  8. GILENYA [Suspect]
     Indication: RELAPSING-REMITTING MULTIPLE SCLEROSIS
     Dosage: 0.5 MG, DAILY, ORAL
     Route: 048
     Dates: start: 20110208
  9. FLEXERIL [Concomitant]

REACTIONS (2)
  - BREATH ODOUR [None]
  - DYSGEUSIA [None]
